FAERS Safety Report 8145678-4 (Version None)
Quarter: 2012Q1

REPORT INFORMATION
  Report Type: 
  Country: None (occurrence: None)
  Receive Date: 20120217
  Receipt Date: 20110623
  Transmission Date: 20120608
  Serious: No
  Sender: FDA-Public Use
  Company Number: US-ALLERGAN-1108520US

PATIENT
  Sex: Male

DRUGS (1)
  1. TAZORAC [Suspect]
     Indication: PRODUCT USED FOR UNKNOWN INDICATION
     Route: 061

REACTIONS (2)
  - PAIN [None]
  - BURNING SENSATION [None]
